FAERS Safety Report 26082263 (Version 1)
Quarter: 2025Q4

REPORT INFORMATION
  Report Type: Report from Study
  Country: IN (occurrence: IN)
  Receive Date: 20251124
  Receipt Date: 20251124
  Transmission Date: 20260117
  Serious: Yes (Death, Other)
  Sender: AMGEN
  Company Number: IN-AMGEN-INDSL2025231318

PATIENT
  Age: 60 Year
  Sex: Male

DRUGS (1)
  1. VECTIBIX [Suspect]
     Active Substance: PANITUMUMAB
     Indication: Colorectal cancer metastatic
     Dosage: UNK
     Route: 040
     Dates: start: 20250501, end: 20250930

REACTIONS (2)
  - Death [Fatal]
  - Gastrointestinal obstruction [Unknown]

NARRATIVE: CASE EVENT DATE: 20250101
